FAERS Safety Report 13516932 (Version 1)
Quarter: 2017Q2

REPORT INFORMATION
  Report Type: Spontaneous
  Country: US (occurrence: US)
  Receive Date: 20170505
  Receipt Date: 20170505
  Transmission Date: 20170830
  Serious: No
  Sender: FDA-Public Use
  Company Number: US-PFIZER INC-2017192964

PATIENT

DRUGS (2)
  1. LIDOCAINE HCL [Suspect]
     Active Substance: LIDOCAINE HYDROCHLORIDE
     Dosage: UNK UNK, WEEKLY (WEEKLY FOR 6-12 MONTHS)
     Route: 042
  2. LIDOCAINE HCL [Suspect]
     Active Substance: LIDOCAINE HYDROCHLORIDE
     Indication: NEUROPATHY PERIPHERAL
     Dosage: UNK UNK, WEEKLY (WEEKLY FOR 6-12 MONTHS)
     Route: 042

REACTIONS (2)
  - Toxicity to various agents [Unknown]
  - Product use in unapproved indication [Unknown]
